FAERS Safety Report 4614621-4 (Version None)
Quarter: 2005Q2

REPORT INFORMATION
  Report Type: 
  Country: None (occurrence: None)
  Receive Date: 20050303
  Receipt Date: 20041220
  Transmission Date: 20051028
  Serious: Yes (Hospitalization)
  Sender: FDA-Public Use
  Company Number: WAES 0412USA02512

PATIENT
  Age: 54 Year
  Sex: Male

DRUGS (5)
  1. PRINIVIL [Suspect]
     Dosage: PO
     Route: 048
  2. ASPIRIN [Concomitant]
  3. COREG [Concomitant]
  4. LIPITOR [Concomitant]
  5. PLAVIX [Concomitant]

REACTIONS (4)
  - COUGH [None]
  - DYSPNOEA [None]
  - HYPERSENSITIVITY [None]
  - RASH [None]
